FAERS Safety Report 12167735 (Version 1)
Quarter: 2016Q1

REPORT INFORMATION
  Report Type: Spontaneous
  Country: US (occurrence: None)
  Receive Date: 20160309
  Receipt Date: 20160309
  Transmission Date: 20160526
  Serious: Yes (Hospitalization)
  Sender: FDA-Public Use
  Company Number: None

PATIENT
  Age: 84 Year
  Sex: Male
  Weight: 67.3 kg

DRUGS (2)
  1. ENOXAPARIN [Suspect]
     Active Substance: ENOXAPARIN
     Indication: DEEP VEIN THROMBOSIS
     Route: 058
     Dates: start: 20151212, end: 20160129
  2. ENOXAPARIN [Suspect]
     Active Substance: ENOXAPARIN
     Indication: PROPHYLAXIS
     Route: 058
     Dates: start: 20151212, end: 20160129

REACTIONS (5)
  - Fall [None]
  - Cerebral haemorrhage [None]
  - Lethargy [None]
  - Headache [None]
  - Abdominal discomfort [None]

NARRATIVE: CASE EVENT DATE: 20160202
